FAERS Safety Report 16798420 (Version 2)
Quarter: 2021Q3

REPORT INFORMATION
  Report Type: Spontaneous
  Country: US (occurrence: US)
  Receive Date: 20190912
  Receipt Date: 20210823
  Transmission Date: 20211014
  Serious: No
  Sender: FDA-Public Use
  Company Number: US-ALLERGAN-1910873US

PATIENT
  Sex: Male

DRUGS (1)
  1. ACULAR [Suspect]
     Active Substance: KETOROLAC TROMETHAMINE
     Indication: OCULAR DISCOMFORT
     Dosage: UNK UNK, PRN

REACTIONS (3)
  - Impaired healing [Not Recovered/Not Resolved]
  - Photophobia [Not Recovered/Not Resolved]
  - Vision blurred [Not Recovered/Not Resolved]
